FAERS Safety Report 15897794 (Version 1)
Quarter: 2019Q1

REPORT INFORMATION
  Report Type: Other
  Country: GB (occurrence: GB)
  Receive Date: 20190201
  Receipt Date: 20190201
  Transmission Date: 20190417
  Serious: Yes (Hospitalization)
  Sender: FDA-Public Use
  Company Number: GB-CELLTRION INC.-2019GB018164

PATIENT

DRUGS (1)
  1. RITUXIMAB (UNKNOWN) [Suspect]
     Active Substance: RITUXIMAB
     Indication: RHEUMATOID ARTHRITIS
     Dosage: UNK
     Route: 042
     Dates: start: 20170504

REACTIONS (4)
  - Neutropenic sepsis [Unknown]
  - Fall [Unknown]
  - Soft tissue injury [Unknown]
  - Neutropenia [Unknown]

NARRATIVE: CASE EVENT DATE: 20180507
